FAERS Safety Report 17013188 (Version 1)
Quarter: 2019Q4

REPORT INFORMATION
  Report Type: Spontaneous
  Country: None (occurrence: US)
  Receive Date: 20191002
  Receipt Date: 20191002
  Transmission Date: 20200122
  Serious: No
  Sender: FDA-Public Use
  Company Number: None

PATIENT
  Age: 27 Year
  Sex: Female

DRUGS (1)
  1. HYDROXYPROG 250MG (1ML )SDV [Suspect]
     Active Substance: HYDROXYPROGESTERONE
     Indication: PREGNANCY
     Route: 030

REACTIONS (4)
  - Headache [None]
  - Maternal exposure during pregnancy [None]
  - Urine odour abnormal [None]
  - Hot flush [None]

NARRATIVE: CASE EVENT DATE: 20191002
